FAERS Safety Report 21976196 (Version 8)
Quarter: 2023Q4

REPORT INFORMATION
  Report Type: Spontaneous
  Country: US (occurrence: US)
  Receive Date: 20230210
  Receipt Date: 20231102
  Transmission Date: 20240110
  Serious: Yes (Hospitalization, Other)
  Sender: FDA-Public Use
  Company Number: US-BRISTOL-MYERS SQUIBB COMPANY-2023-019716

PATIENT
  Age: 72 Year
  Sex: Female

DRUGS (3)
  1. LENALIDOMIDE [Suspect]
     Active Substance: LENALIDOMIDE
     Indication: Plasma cell myeloma
     Dosage: FREQ: TAKE 1 CAPSULE (25MG TOTAL) BY MOUTH EVERY DAY ON DAYS 1-21 OF EACH 28 DAY TREATMENT CYCLE
     Route: 048
     Dates: start: 20230123, end: 20230131
  2. LENALIDOMIDE [Suspect]
     Active Substance: LENALIDOMIDE
     Dosage: TAKE 1 CAPSULE WHOLE BY MOUTH WITH OR WITHOUT FOOD AT SAME TIME DAILY FOR 21 DAYS THEN 7 DAYS OFF OF
     Route: 048
     Dates: start: 20230123, end: 20230628
  3. LENALIDOMIDE [Suspect]
     Active Substance: LENALIDOMIDE
     Route: 048
     Dates: start: 20230824

REACTIONS (11)
  - Dizziness [Not Recovered/Not Resolved]
  - Epistaxis [Recovered/Resolved]
  - Nephrolithiasis [Unknown]
  - Constipation [Not Recovered/Not Resolved]
  - Pruritus [Recovered/Resolved]
  - Nausea [Recovered/Resolved]
  - Fatigue [Recovered/Resolved]
  - Skin ulcer [Recovered/Resolved]
  - White blood cell count decreased [Unknown]
  - Platelet count decreased [Recovered/Resolved]
  - Cystitis [Recovering/Resolving]

NARRATIVE: CASE EVENT DATE: 20230801
